FAERS Safety Report 4572229-3 (Version None)
Quarter: 2005Q1

REPORT INFORMATION
  Report Type: 
  Country: None (occurrence: None)
  Receive Date: 20050203
  Receipt Date: 20050126
  Transmission Date: 20050727
  Serious: Yes (Hospitalization, Other)
  Sender: FDA-Public Use
  Company Number: HQWYE904827JAN05

PATIENT
  Age: 74 Year
  Sex: Female

DRUGS (11)
  1. HYPEN (ETODOLAC, TABLET) [Suspect]
     Indication: PAIN IN EXTREMITY
     Dosage: 400 MG, FREQUENCY UNSPECIFIED, ORAL
     Route: 048
     Dates: start: 20040830, end: 20040910
  2. TEMOCAPRIL HYDROCHLORIDE) [Concomitant]
  3. ATENOLOL [Concomitant]
  4. DIAZEPAM [Concomitant]
  5. TICLODIPINE HYDROCHLORIDE [Concomitant]
  6. TORSEMIDE [Concomitant]
  7. DONEPEZIL HCL [Concomitant]
  8. PROPIVERINE HYDROCHLORIDE [Concomitant]
  9. ALLOPURINOL [Suspect]
     Indication: HYPERURICAEMIA
     Dosage: 400 MG, FREQUENCY UNSPECIFIED, ORAL
     Route: 048
     Dates: start: 20010801, end: 20041018
  10. TAMOXIFEN CITRATE [Suspect]
     Indication: BREAST CANCER
     Dosage: 20 MG, UNSPECIFIED FREQUENCY, ORAL
     Route: 048
  11. TEGAFUR URACIL [Concomitant]
     Indication: BREAST CANCER
     Dosage: 200 MG, FREQUENCY UNSPECIFIED, ORAL
     Route: 048
     Dates: start: 20040416

REACTIONS (8)
  - BLOOD LACTATE DEHYDROGENASE INCREASED [None]
  - DERMATITIS EXFOLIATIVE [None]
  - DRUG ERUPTION [None]
  - EOSINOPHIL COUNT INCREASED [None]
  - FATIGUE [None]
  - PYREXIA [None]
  - SKIN EXFOLIATION [None]
  - WHITE BLOOD CELL COUNT DECREASED [None]
